FAERS Safety Report 7547954-2 (Version None)
Quarter: 2011Q2

REPORT INFORMATION
  Report Type: 
  Country: None (occurrence: None)
  Receive Date: 20110615
  Receipt Date: 20080303
  Transmission Date: 20111010
  Serious: No
  Sender: FDA-Public Use
  Company Number: 2008BI006370

PATIENT
  Age: 33 Year
  Sex: Female

DRUGS (4)
  1. AVONEX [Concomitant]
     Indication: MULTIPLE SCLEROSIS
     Route: 030
     Dates: start: 20061001
  2. TYSABRI [Suspect]
     Indication: MULTIPLE SCLEROSIS
     Route: 042
     Dates: start: 20050103
  3. AVONEX [Concomitant]
     Route: 030
     Dates: start: 20000413
  4. TYSABRI [Suspect]
     Route: 042
     Dates: start: 20061011, end: 20100730

REACTIONS (1)
  - HERPES ZOSTER [None]
